FAERS Safety Report 14788619 (Version 1)
Quarter: 2018Q2

REPORT INFORMATION
  Report Type: Spontaneous
  Country: US (occurrence: US)
  Receive Date: 20180423
  Receipt Date: 20180423
  Transmission Date: 20180711
  Serious: Yes (Hospitalization)
  Sender: FDA-Public Use
  Company Number: US-ROCHE-2111311

PATIENT
  Age: 5 Year
  Sex: Female

DRUGS (4)
  1. TOBRAMYCIN. [Suspect]
     Active Substance: TOBRAMYCIN
     Indication: HYPOXIA
  2. PULMOZYME [Suspect]
     Active Substance: DORNASE ALFA
     Indication: HYPOXIA
  3. TOBRAMYCIN. [Suspect]
     Active Substance: TOBRAMYCIN
     Indication: CHRONIC RESPIRATORY FAILURE
     Dosage: STRENGTH: 300 MG PER 5 ML, 28 DAYS OFF 28 DAYS;ONGOING
     Route: 050
     Dates: start: 20160212
  4. PULMOZYME [Suspect]
     Active Substance: DORNASE ALFA
     Indication: CHRONIC RESPIRATORY FAILURE
     Dosage: STRENGTH: 2.5 MG PER 2.5 ML, ONGOING
     Route: 050
     Dates: start: 20151220

REACTIONS (3)
  - Intentional product use issue [Unknown]
  - Off label use [Unknown]
  - Respiratory tract infection [Unknown]

NARRATIVE: CASE EVENT DATE: 20180410
